FAERS Safety Report 6738005-8 (Version None)
Quarter: 2010Q2

REPORT INFORMATION
  Report Type: 
  Country: None (occurrence: None)
  Receive Date: 20100524
  Receipt Date: 20100518
  Transmission Date: 20101027
  Serious: Yes (Other)
  Sender: FDA-Public Use
  Company Number: DE-ROCHE-703918

PATIENT
  Sex: Male
  Weight: 116 kg

DRUGS (3)
  1. CAPECITABINE [Suspect]
     Dosage: FREQUENCY: 2X14 DAYS, LAST DOSE PRIOR TO SAE: 20 JULY 2009
     Route: 048
     Dates: start: 20090615
  2. BEVACIZUMAB [Suspect]
     Dosage: FREQUENCY: 3 TIMES IN TOTAL, LAST DOSE PRIOR TO SAE: 13 JULY 2009
     Route: 042
     Dates: start: 20090615
  3. OXALIPLATIN [Suspect]
     Dosage: FREQUENCY: 4 TIMES IN TOTAL, LAST DOSE PRIOR TO SAE: 13 JULY 2009.
     Route: 042
     Dates: start: 20090615

REACTIONS (1)
  - IMPAIRED HEALING [None]
